FAERS Safety Report 4274949-7 (Version None)
Quarter: 2004Q1

REPORT INFORMATION
  Report Type: 
  Country: None (occurrence: None)
  Receive Date: 20040120
  Receipt Date: 20040109
  Transmission Date: 20041129
  Serious: Yes (Death)
  Sender: FDA-Public Use
  Company Number: 2004S1000072

PATIENT
  Age: 32 Year
  Sex: Male

DRUGS (7)
  1. CLOZAPINE [Suspect]
     Dosage: 200 MG/DAY, ORAL
     Route: 048
     Dates: start: 20020821, end: 20031101
  2. CLOZAPINE [Suspect]
     Dosage: 200 MG/DAY, ORAL
     Route: 048
     Dates: start: 20031201, end: 20040103
  3. LEVOFLOXACIN [Concomitant]
  4. QUETIAPINE FUMERATE [Concomitant]
  5. SIMVASTATIN [Concomitant]
  6. TEMAZEPAM [Concomitant]
  7. VALSARTAN [Concomitant]

REACTIONS (2)
  - MYOCARDIAL INFARCTION [None]
  - TREATMENT NONCOMPLIANCE [None]
